FAERS Safety Report 17401602 (Version 1)
Quarter: 2020Q1

REPORT INFORMATION
  Report Type: Other
  Country: CN (occurrence: CN)
  Receive Date: 20200208
  Receipt Date: 20200208
  Transmission Date: 20200409
  Serious: Yes (Other)
  Sender: FDA-Public Use
  Company Number: CN-JIANGSU HENGRUI MEDICINE CO., LTD.-2080005

PATIENT
  Age: 49 Year
  Sex: Male
  Weight: 74 kg

DRUGS (6)
  1. DEXMEDETOMIDINE HYDROCHLORIDE INJECTION [Suspect]
     Active Substance: DEXMEDETOMIDINE HYDROCHLORIDE
     Route: 041
     Dates: start: 20191212, end: 20191212
  2. CISATRACURIUM BESYLATE INJECTION USP, 20 MG/10 ML (2 MG/ML) MULTI-DOSE [Suspect]
     Active Substance: CISATRACURIUM BESYLATE
     Indication: INDUCTION OF ANAESTHESIA
     Route: 040
     Dates: start: 20191212, end: 20191212
  3. SEVOFLURANE FOR INHALATION [Suspect]
     Active Substance: SEVOFLURANE
     Route: 055
     Dates: start: 20191212, end: 20191212
  4. HYDROXYETHYL STARCH IN SODIUM CHLORIDE [Suspect]
     Active Substance: HYDROXYETHYL STARCH 130/0.4\SODIUM CHLORIDE
     Route: 041
     Dates: start: 20191212, end: 20191212
  5. REMIFENTANIL HYDROCHLORIDE FOR INJECTION [Suspect]
     Active Substance: REMIFENTANIL HYDROCHLORIDE
     Route: 041
     Dates: start: 20191212, end: 20191212
  6. PROPOFOL MEDIUM AND LONG CHAIN FAT EMULSION INJECTION [Suspect]
     Active Substance: PROPOFOL
     Route: 041
     Dates: start: 20191212, end: 20191212

REACTIONS (1)
  - Ventricular fibrillation [Recovered/Resolved]

NARRATIVE: CASE EVENT DATE: 20191212
